FAERS Safety Report 4323386-5 (Version None)
Quarter: 2004Q1

REPORT INFORMATION
  Report Type: 
  Country: None (occurrence: None)
  Receive Date: 20040325
  Receipt Date: 20040323
  Transmission Date: 20041129
  Serious: Yes (Death)
  Sender: FDA-Public Use
  Company Number: US-GLAXOSMITHKLINE-A0504045A

PATIENT
  Age: 48 Year
  Sex: Male

DRUGS (3)
  1. WELLBUTRIN [Suspect]
     Indication: BIPOLAR I DISORDER
     Route: 065
  2. XANAX [Concomitant]
  3. ALCOHOL [Concomitant]

REACTIONS (2)
  - ALCOHOL PROBLEM [None]
  - COMPLETED SUICIDE [None]
